FAERS Safety Report 9079959 (Version 3)
Quarter: 2013Q3

REPORT INFORMATION
  Report Type: Spontaneous
  Country: CO (occurrence: CO)
  Receive Date: 20130215
  Receipt Date: 20130910
  Transmission Date: 20140515
  Serious: Yes (Other)
  Sender: FDA-Public Use
  Company Number: CO-PFIZER INC-2013059144

PATIENT
  Age: 11 Year
  Sex: Female
  Weight: 29.5 kg

DRUGS (11)
  1. GENOTROPIN [Suspect]
     Indication: GROWTH HORMONE DEFICIENCY
     Dosage: 1.4 MG, 1X/DAY
     Route: 058
     Dates: start: 2007
  2. GENOTROPIN [Suspect]
     Indication: SCLERODERMA
     Dosage: 0.8 MG, 1X/DAY
     Route: 058
     Dates: start: 2008
  3. GENOTROPIN [Suspect]
     Indication: BODY HEIGHT BELOW NORMAL
     Dosage: 1.2 MG, 1X/DAY
     Route: 058
     Dates: end: 2011
  4. GENOTROPIN [Suspect]
     Dosage: 1.4 MG, 1X/DAY
  5. VITAMINS [Concomitant]
     Indication: SCLERODERMA
     Dosage: 2 SPOONS PER DAY
     Route: 048
     Dates: start: 2004
  6. METHOTREXATE [Concomitant]
     Indication: SCLERODERMA
     Dosage: 4 TABLETS OF 2.5MG, WEEKLY
     Route: 048
     Dates: start: 2004
  7. LOSARTAN [Concomitant]
     Indication: SCLERODERMA
     Dosage: 50 MG, 1X/DAY
     Route: 048
     Dates: start: 2004
  8. FOLIC ACID [Concomitant]
     Indication: SCLERODERMA
     Dosage: 5 MG, WEEKLY
     Route: 048
     Dates: start: 2004
  9. TUMS [Concomitant]
     Indication: ANTACID THERAPY
     Dosage: UNK
     Route: 048
     Dates: start: 2004
  10. TUMS [Concomitant]
     Indication: SCLERODERMA
  11. ASAWIN [Concomitant]
     Dosage: UNK

REACTIONS (6)
  - Epistaxis [Recovered/Resolved]
  - Appendicitis [Unknown]
  - Depression [Recovered/Resolved]
  - Adenoidal disorder [Unknown]
  - Tonsillar disorder [Unknown]
  - Off label use [Unknown]
